FAERS Safety Report 7172720 (Version 33)
Quarter: 2014Q2

REPORT INFORMATION
  Report Type: Report from Study
  Country: CA (occurrence: CA)
  Receive Date: 20091110
  Receipt Date: 20140526
  Transmission Date: 20141212
  Serious: Yes (Other)
  Sender: FDA-Public Use
  Company Number: PHHY2009CA17707

PATIENT
  Sex: Female

DRUGS (8)
  1. SANDOSTATIN LAR [Suspect]
     Indication: ACROMEGALY
     Dosage: 20 MG, QMO
     Route: 030
     Dates: start: 20090312
  2. SANDOSTATIN LAR [Suspect]
     Dosage: 30 MG, EVERY 4 WEEKS
     Route: 030
  3. SANDOSTATIN LAR [Suspect]
     Dosage: 30 MG, EVERY 4 WEEKS
     Route: 030
  4. SANDOSTATIN LAR [Suspect]
     Dosage: 20 MG, QMO
     Route: 030
  5. SANDOSTATIN LAR [Suspect]
     Dosage: 20 MG, EVERY 4 WEEKS
     Route: 030
  6. SANDOSTATIN LAR [Suspect]
     Dosage: 20 MG, QMO
     Route: 030
  7. SANDOSTATIN LAR [Suspect]
     Dosage: 20 MG, EVERY 4 WEEKS
     Route: 030
  8. SANDOSTATIN LAR [Suspect]
     Dosage: 20 MG, QMO
     Route: 030

REACTIONS (31)
  - Dry throat [Unknown]
  - Rhinitis [Unknown]
  - Throat irritation [Unknown]
  - Sneezing [Unknown]
  - Nasal congestion [Unknown]
  - Pyrexia [Unknown]
  - Cough [Unknown]
  - Pulmonary congestion [Unknown]
  - Chest pain [Unknown]
  - Chest discomfort [Unknown]
  - Superficial injury of eye [Unknown]
  - Eye pain [Unknown]
  - Injection site erythema [Unknown]
  - Injection site reaction [Recovered/Resolved]
  - Injection site swelling [Unknown]
  - Conjunctivitis [Unknown]
  - Malaise [Unknown]
  - Sinusitis [Unknown]
  - Abdominal pain upper [Unknown]
  - Dizziness [Recovered/Resolved]
  - Fatigue [Unknown]
  - Blood growth hormone increased [Unknown]
  - Injection site pain [Unknown]
  - Bronchitis [Unknown]
  - Blood pressure increased [Unknown]
  - Pneumonia [Unknown]
  - Abdominal distension [Unknown]
  - Rash generalised [Recovered/Resolved]
  - Influenza [Unknown]
  - Upper respiratory tract infection [Unknown]
  - Oropharyngeal pain [Unknown]
